FAERS Safety Report 17339290 (Version 2)
Quarter: 2020Q2

REPORT INFORMATION
  Report Type: Spontaneous
  Country: US (occurrence: US)
  Receive Date: 20200129
  Receipt Date: 20200401
  Transmission Date: 20200713
  Serious: No
  Sender: FDA-Public Use
  Company Number: US-PFIZER INC-2020039307

PATIENT
  Age: 56 Year
  Sex: Female

DRUGS (2)
  1. XELJANZ XR [Suspect]
     Active Substance: TOFACITINIB CITRATE
     Dosage: UNK
     Dates: start: 20191201
  2. XELJANZ XR [Suspect]
     Active Substance: TOFACITINIB CITRATE
     Dosage: 11 MG, UNK
     Dates: start: 20191223

REACTIONS (7)
  - Oropharyngeal pain [Unknown]
  - Muscle twitching [Unknown]
  - Bone pain [Unknown]
  - Myalgia [Unknown]
  - Asthenia [Unknown]
  - Insomnia [Unknown]
  - Drug ineffective [Unknown]
